FAERS Safety Report 15163656 (Version 1)
Quarter: 2018Q3

REPORT INFORMATION
  Report Type: Spontaneous
  Country: US (occurrence: US)
  Receive Date: 20180719
  Receipt Date: 20180719
  Transmission Date: 20181010
  Serious: Yes (Life-Threatening, Hospitalization, Other)
  Sender: FDA-Public Use
  Company Number: US-JNJFOC-20180716467

PATIENT

DRUGS (6)
  1. MINOXIDIL. [Suspect]
     Active Substance: MINOXIDIL
     Indication: PRODUCT USED FOR UNKNOWN INDICATION
     Dosage: TASTE, MOUTHFUL OR SIP
     Route: 048
  2. MINOXIDIL. [Suspect]
     Active Substance: MINOXIDIL
     Indication: PRODUCT USED FOR UNKNOWN INDICATION
     Route: 047
  3. MINOXIDIL. [Suspect]
     Active Substance: MINOXIDIL
     Indication: ACCIDENTAL EXPOSURE TO PRODUCT
     Dosage: TASTE, MOUTHFUL OR SIP
     Route: 048
  4. MINOXIDIL. [Suspect]
     Active Substance: MINOXIDIL
     Indication: ACCIDENTAL EXPOSURE TO PRODUCT
     Route: 047
  5. MINOXIDIL. [Suspect]
     Active Substance: MINOXIDIL
     Indication: ACCIDENTAL EXPOSURE TO PRODUCT
     Route: 061
  6. MINOXIDIL. [Suspect]
     Active Substance: MINOXIDIL
     Indication: PRODUCT USED FOR UNKNOWN INDICATION
     Route: 061

REACTIONS (32)
  - Lacrimation increased [Unknown]
  - Ocular hyperaemia [Unknown]
  - Pyrexia [Unknown]
  - Seizure [Unknown]
  - Tachycardia [Unknown]
  - Adverse event [Unknown]
  - Incorrect dose administered [Unknown]
  - Respiratory depression [Unknown]
  - Agitation [Unknown]
  - Accidental exposure to product [Unknown]
  - Incorrect route of drug administration [Unknown]
  - Rash [Unknown]
  - Coma [Unknown]
  - Oedema [Unknown]
  - Somnolence [Unknown]
  - Product administered at inappropriate site [Unknown]
  - Bradycardia [Unknown]
  - Irritability [Unknown]
  - Lethargy [Unknown]
  - Choking [Unknown]
  - Conduction disorder [Unknown]
  - Vomiting [Unknown]
  - Eye irritation [Unknown]
  - Eye pain [Unknown]
  - Hyperthermia [Unknown]
  - Intentional product misuse [Unknown]
  - Hypertension [Unknown]
  - Hypotension [Unknown]
  - Headache [Unknown]
  - Corneal abrasion [Unknown]
  - Cough [Unknown]
  - Drug administered to patient of inappropriate age [Unknown]
